FAERS Safety Report 5306132-8 (Version None)
Quarter: 2007Q2

REPORT INFORMATION
  Report Type: 
  Country: None (occurrence: None)
  Receive Date: 20070417
  Receipt Date: 20070412
  Transmission Date: 20071010
  Serious: Yes (Other)
  Sender: FDA-Public Use
  Company Number: 200704AGG00620

PATIENT
  Age: 73 Year
  Sex: Male

DRUGS (1)
  1. AGGRASTAT [Suspect]
     Indication: ACUTE MYOCARDIAL INFARCTION
     Dosage: INTRAVENOUS BOLUS
     Route: 040
     Dates: start: 20070126, end: 20070126

REACTIONS (1)
  - MYOCARDIAL INFARCTION [None]
